FAERS Safety Report 4627170-4 (Version None)
Quarter: 2005Q2

REPORT INFORMATION
  Report Type: 
  Country: None (occurrence: None)
  Receive Date: 20050405
  Receipt Date: 20050217
  Transmission Date: 20051028
  Serious: Yes (Hospitalization, Other)
  Sender: FDA-Public Use
  Company Number: 2005002950

PATIENT
  Age: 36 Year
  Sex: Female

DRUGS (2)
  1. QUILONUM RETARD [Suspect]
     Dosage: 450MG SEE DOSAGE TEXT
     Route: 048
     Dates: start: 20050216, end: 20050216
  2. ZODURAT [Suspect]
     Dosage: 7.5MG SEE DOSAGE TEXT
     Route: 048
     Dates: start: 20050216, end: 20050216

REACTIONS (4)
  - FATIGUE [None]
  - HYPOTENSION [None]
  - INTENTIONAL MISUSE [None]
  - SUICIDE ATTEMPT [None]
